APPROVED DRUG PRODUCT: ZINC SULFATE
Active Ingredient: ZINC SULFATE
Strength: EQ 1MG ZINC/ML
Dosage Form/Route: INJECTABLE;INJECTION
Application: N019229 | Product #002
Applicant: ABRAXIS PHARMACEUTICAL PRODUCTS
Approved: May 5, 1987 | RLD: No | RS: No | Type: DISCN